FAERS Safety Report 23169889 (Version 1)
Quarter: 2023Q4

REPORT INFORMATION
  Report Type: Spontaneous
  Country: ES (occurrence: ES)
  Receive Date: 20231110
  Receipt Date: 20231110
  Transmission Date: 20240109
  Serious: Yes (Life-Threatening, Other)
  Sender: FDA-Public Use
  Company Number: ES-AEMPS-1444550

PATIENT
  Sex: Female

DRUGS (3)
  1. DEXKETOPROFEN [Interacting]
     Active Substance: DEXKETOPROFEN
     Indication: Product used for unknown indication
     Dosage: UNK
     Route: 065
     Dates: start: 202309, end: 202309
  2. IBUPROFEN [Interacting]
     Active Substance: IBUPROFEN
     Indication: Product used for unknown indication
     Dosage: UNK
     Route: 065
     Dates: start: 202309, end: 202309
  3. CLOXACILLIN [Concomitant]
     Active Substance: CLOXACILLIN
     Indication: Product used for unknown indication
     Dosage: UNK
     Route: 042
     Dates: start: 202309, end: 202309

REACTIONS (2)
  - Acute pulmonary oedema [Unknown]
  - Product prescribing error [Recovered/Resolved]

NARRATIVE: CASE EVENT DATE: 20230901
